FAERS Safety Report 11272403 (Version 2)
Quarter: 2015Q3

REPORT INFORMATION
  Report Type: Spontaneous
  Country: US (occurrence: US)
  Receive Date: 20150715
  Receipt Date: 20150810
  Transmission Date: 20151125
  Serious: Yes (Hospitalization)
  Sender: FDA-Public Use
  Company Number: US-BIOGENIDEC-2015BI066209

PATIENT
  Age: 69 Year
  Sex: Female

DRUGS (5)
  1. COREG [Concomitant]
     Active Substance: CARVEDILOL
  2. PAROXETINE HCL [Concomitant]
     Active Substance: PAROXETINE HYDROCHLORIDE
  3. METFORMIN HCL [Concomitant]
     Active Substance: METFORMIN HYDROCHLORIDE
  4. CARBATROL [Concomitant]
     Active Substance: CARBAMAZEPINE
  5. TECFIDERA [Suspect]
     Active Substance: DIMETHYL FUMARATE
     Indication: MULTIPLE SCLEROSIS
     Route: 048
     Dates: start: 2013

REACTIONS (3)
  - Fall [Recovered/Resolved]
  - Lower extremity mass [Unknown]
  - Skin infection [Recovered/Resolved]

NARRATIVE: CASE EVENT DATE: 201505
